FAERS Safety Report 11873411 (Version 3)
Quarter: 2016Q3

REPORT INFORMATION
  Report Type: Report from Study
  Country: US (occurrence: US)
  Receive Date: 20151228
  Receipt Date: 20160819
  Transmission Date: 20161109
  Serious: Yes (Hospitalization)
  Sender: FDA-Public Use
  Company Number: US-ACTELION-A-NJ2015-125877

PATIENT
  Age: 5 Year
  Sex: Male

DRUGS (3)
  1. TRACLEER [Suspect]
     Active Substance: BOSENTAN
     Dosage: 31.25 MG, UNK
     Route: 048
  2. SILDENAFIL. [Concomitant]
     Active Substance: SILDENAFIL
  3. TRACLEER [Suspect]
     Active Substance: BOSENTAN
     Indication: PULMONARY HYPERTENSION
     Dosage: UNK
     Route: 048
     Dates: start: 20130808

REACTIONS (7)
  - Pneumonia [Unknown]
  - Nasopharyngitis [Unknown]
  - Ear operation [Unknown]
  - Viral upper respiratory tract infection [Unknown]
  - Condition aggravated [Unknown]
  - Lip operation [Unknown]
  - Ear infection [Unknown]
